FAERS Safety Report 8847283 (Version 2)
Quarter: 2012Q4

REPORT INFORMATION
  Report Type: Report from Study
  Country: US (occurrence: US)
  Receive Date: 20121018
  Receipt Date: 20121031
  Transmission Date: 20130627
  Serious: Yes (Hospitalization)
  Sender: FDA-Public Use
  Company Number: US-ABBOTT-12P-163-0995200-00

PATIENT
  Age: 41 Year
  Sex: Male

DRUGS (11)
  1. DEPAKENE [Suspect]
     Indication: SYNOVIAL SARCOMA METASTATIC
     Route: 048
     Dates: start: 20120903, end: 20120907
  2. DEPAKENE [Suspect]
     Route: 048
  3. DOCETAXEL [Concomitant]
     Indication: SYNOVIAL SARCOMA METASTATIC
     Route: 065
     Dates: start: 20120907
  4. DOCETAXEL [Concomitant]
     Route: 065
     Dates: start: 20120914
  5. GEMCITABINE [Concomitant]
     Indication: SYNOVIAL SARCOMA METASTATIC
     Route: 065
     Dates: start: 20120907
  6. GEMCITABINE [Concomitant]
     Route: 065
     Dates: start: 20120914
  7. BEVACIZUMAB [Concomitant]
     Indication: SYNOVIAL SARCOMA METASTATIC
     Route: 042
     Dates: start: 20120907
  8. HYDROMORPHONE [Concomitant]
     Indication: PRODUCT USED FOR UNKNOWN INDICATION
  9. ONDANSETRON [Concomitant]
     Indication: PRODUCT USED FOR UNKNOWN INDICATION
  10. ZOLPIDEM [Concomitant]
     Indication: PRODUCT USED FOR UNKNOWN INDICATION
  11. DOXYCYCLINE [Concomitant]
     Indication: PRODUCT USED FOR UNKNOWN INDICATION

REACTIONS (5)
  - Oropharyngeal pain [Unknown]
  - Dysphagia [Unknown]
  - Dermatitis acneiform [Unknown]
  - Headache [Unknown]
  - Febrile neutropenia [Not Recovered/Not Resolved]
